FAERS Safety Report 16855448 (Version 1)
Quarter: 2019Q3

REPORT INFORMATION
  Report Type: Spontaneous
  Country: JP (occurrence: JP)
  Receive Date: 20190926
  Receipt Date: 20190926
  Transmission Date: 20191005
  Serious: Yes (Hospitalization)
  Sender: FDA-Public Use
  Company Number: JP-MYLANLABS-2019M1088316

PATIENT
  Age: 68 Year
  Sex: Female

DRUGS (1)
  1. EPIPEN [Suspect]
     Active Substance: EPINEPHRINE
     Indication: ARTHROPOD STING
     Route: 030

REACTIONS (2)
  - Wrong technique in device usage process [Unknown]
  - Injection site pain [Unknown]
